FAERS Safety Report 5990556-X (Version None)
Quarter: 2008Q4

REPORT INFORMATION
  Report Type: 
  Country: None (occurrence: None)
  Receive Date: 20081211
  Receipt Date: 20080421
  Transmission Date: 20090506
  Serious: No
  Sender: FDA-Public Use
  Company Number: US-AMGEN-KDL275231

PATIENT
  Sex: Female

DRUGS (1)
  1. ENBREL [Suspect]
     Indication: ANKYLOSING SPONDYLITIS
     Route: 058
     Dates: start: 20071130

REACTIONS (5)
  - AFFECTIVE DISORDER [None]
  - ANXIETY [None]
  - FLUSHING [None]
  - HEADACHE [None]
  - TACHYCARDIA [None]
